FAERS Safety Report 17073578 (Version 1)
Quarter: 2019Q4

REPORT INFORMATION
  Report Type: Spontaneous
  Country: FR (occurrence: FR)
  Receive Date: 20191126
  Receipt Date: 20191126
  Transmission Date: 20200122
  Serious: Yes (Other)
  Sender: FDA-Public Use
  Company Number: FR-BRISTOL-MYERS SQUIBB COMPANY-BMS-2019-109891

PATIENT
  Age: 68 Year
  Sex: Male
  Weight: 71 kg

DRUGS (7)
  1. INEXIUM [ESOMEPRAZOLE SODIUM] [Concomitant]
     Active Substance: ESOMEPRAZOLE SODIUM
     Indication: PRODUCT USED FOR UNKNOWN INDICATION
     Dosage: UNK
     Route: 065
  2. DOLIPRANE [Concomitant]
     Active Substance: ACETAMINOPHEN
     Indication: PRODUCT USED FOR UNKNOWN INDICATION
     Dosage: UNK
     Route: 065
  3. HYDREA [Suspect]
     Active Substance: HYDROXYUREA
     Indication: ESSENTIAL THROMBOCYTHAEMIA
     Dosage: 1000 MILLIGRAM, 1 DAY
     Route: 048
     Dates: start: 201501
  4. REMICADE [Suspect]
     Active Substance: INFLIXIMAB
     Indication: HISTIOCYTOSIS
     Dosage: 360 MILLIGRAM, 1 CYCLICAL
     Route: 042
     Dates: start: 2014
  5. METOJECT [Suspect]
     Active Substance: METHOTREXATE SODIUM
     Indication: HISTIOCYTOSIS
     Dosage: 10 MILLIGRAM, QWK
     Route: 058
     Dates: start: 201401
  6. KARDEGIC [Concomitant]
     Active Substance: ASPIRIN DL-LYSINE
     Indication: PRODUCT USED FOR UNKNOWN INDICATION
     Dosage: UNK
     Route: 065
  7. ACIDE FOLIQUE [Concomitant]
     Active Substance: FOLIC ACID
     Indication: PRODUCT USED FOR UNKNOWN INDICATION
     Dosage: UNK
     Route: 065

REACTIONS (1)
  - Infective tenosynovitis [Not Recovered/Not Resolved]

NARRATIVE: CASE EVENT DATE: 201909
